FAERS Safety Report 10781583 (Version 1)
Quarter: 2015Q1

REPORT INFORMATION
  Report Type: Report from Study
  Country: TW (occurrence: TW)
  Receive Date: 20150210
  Receipt Date: 20150210
  Transmission Date: 20150721
  Serious: Yes (Hospitalization)
  Sender: FDA-Public Use
  Company Number: TW-ABBVIE-14K-153-1327033-00

PATIENT
  Age: 75 Year
  Sex: Female
  Weight: 44.8 kg

DRUGS (2)
  1. HUMIRA [Suspect]
     Active Substance: ADALIMUMAB
     Indication: RHEUMATOID ARTHRITIS
     Route: 058
     Dates: start: 201303, end: 201408
  2. HUMIRA [Suspect]
     Active Substance: ADALIMUMAB
     Route: 058
     Dates: start: 20141114, end: 20141212

REACTIONS (2)
  - Arthritis bacterial [Recovering/Resolving]
  - Synovial cyst [Unknown]

NARRATIVE: CASE EVENT DATE: 20140822
